FAERS Safety Report 4600807-1 (Version None)
Quarter: 2005Q1

REPORT INFORMATION
  Report Type: 
  Country: None (occurrence: None)
  Receive Date: 20050304
  Receipt Date: 20050223
  Transmission Date: 20050727
  Serious: Yes (Hospitalization)
  Sender: FDA-Public Use
  Company Number: S05-USA-00988-01

PATIENT
  Age: 70 Year
  Sex: Male

DRUGS (2)
  1. LEXAPRO [Suspect]
     Indication: DEPRESSION
     Dosage: 20 MG QD PO
     Route: 048
     Dates: start: 20050101
  2. MULTIPLE MEDICATIONS (NOS) [Concomitant]

REACTIONS (2)
  - DUODENAL ULCER [None]
  - STRESS [None]
